FAERS Safety Report 19059655 (Version 3)
Quarter: 2021Q2

REPORT INFORMATION
  Report Type: Other
  Country: DE (occurrence: DE)
  Receive Date: 20210326
  Receipt Date: 20210509
  Transmission Date: 20210717
  Serious: Yes (Hospitalization, Other)
  Sender: FDA-Public Use
  Company Number: DE-ROCHE-2347330

PATIENT
  Age: 32 Year
  Sex: Female

DRUGS (9)
  1. CITALOPRAM [Concomitant]
     Active Substance: CITALOPRAM HYDROBROMIDE
  2. DOXEPIN [Concomitant]
     Active Substance: DOXEPIN
  3. PANTOPRAZOL [Concomitant]
     Active Substance: PANTOPRAZOLE SODIUM
  4. BETAISODONA [Concomitant]
     Active Substance: POVIDONE-IODINE
  5. OCREVUS [Suspect]
     Active Substance: OCRELIZUMAB
     Route: 042
     Dates: start: 20180606
  6. GABAPENTIN. [Concomitant]
     Active Substance: GABAPENTIN
  7. OCREVUS [Suspect]
     Active Substance: OCRELIZUMAB
     Indication: RELAPSING-REMITTING MULTIPLE SCLEROSIS
     Route: 042
     Dates: start: 20171206
  8. DIBENZYRAN [Concomitant]
     Active Substance: PHENOXYBENZAMINE HYDROCHLORIDE
  9. IBUPROFEN. [Concomitant]
     Active Substance: IBUPROFEN

REACTIONS (7)
  - Oropharyngeal pain [Recovered/Resolved]
  - Vaginal cancer [Recovered/Resolved]
  - Fatigue [Recovered/Resolved]
  - Hypothyroidism [Not Recovered/Not Resolved]
  - Breast abscess [Recovered/Resolved]
  - Alopecia [Recovering/Resolving]
  - Lymphadenopathy [Not Recovered/Not Resolved]

NARRATIVE: CASE EVENT DATE: 201801
